FAERS Safety Report 25871917 (Version 1)
Quarter: 2025Q4

REPORT INFORMATION
  Report Type: Spontaneous
  Country: CA (occurrence: CA)
  Receive Date: 20251002
  Receipt Date: 20251002
  Transmission Date: 20260118
  Serious: Yes (Other)
  Sender: CELLTRION
  Company Number: CA-CELLTRION INC.-2025CA034964

PATIENT

DRUGS (3)
  1. YUFLYMA [Suspect]
     Active Substance: ADALIMUMAB-AATY
     Indication: Hidradenitis
     Dosage: 80 MG, EVERY 5 DAYS (MAINTENANCE)
     Route: 058
     Dates: start: 20240917
  2. YUFLYMA [Suspect]
     Active Substance: ADALIMUMAB-AATY
  3. CLOZAPINE [Concomitant]
     Active Substance: CLOZAPINE
     Dosage: 200 MG DAILY

REACTIONS (2)
  - Hidradenitis [Unknown]
  - Intentional product use issue [Unknown]
